FAERS Safety Report 8139774-5 (Version None)
Quarter: 2012Q1

REPORT INFORMATION
  Report Type: 
  Country: None (occurrence: None)
  Receive Date: 20120215
  Receipt Date: 20120208
  Transmission Date: 20120608
  Serious: Yes (Other)
  Sender: FDA-Public Use
  Company Number: DE-B.I. PHARMACEUTICALS,INC./RIDGEFIELD-2012-DE-00423DE

PATIENT
  Age: 74 Year
  Sex: Female

DRUGS (7)
  1. LASIC [Concomitant]
  2. PRADAXA [Suspect]
     Dosage: 150 MG
  3. SIMBAV. [Concomitant]
  4. PRADAXA [Suspect]
     Indication: ATRIAL FIBRILLATION
     Dates: start: 20111212
  5. AMLOD [Concomitant]
  6. HYDROCHLOROTHIAZIDE [Concomitant]
  7. BISOPROLOL FUMARATE [Concomitant]

REACTIONS (1)
  - THROMBOCYTOPENIA [None]
